FAERS Safety Report 10027263 (Version 2)
Quarter: 2014Q2

REPORT INFORMATION
  Report Type: Spontaneous
  Country: JP (occurrence: JP)
  Receive Date: 20140321
  Receipt Date: 20140422
  Transmission Date: 20141212
  Serious: Yes (Death, Other)
  Sender: FDA-Public Use
  Company Number: JP-ROCHE-1365697

PATIENT
  Age: 61 Year
  Sex: Female

DRUGS (21)
  1. PERJETA [Suspect]
     Indication: HER-2 POSITIVE BREAST CANCER
     Dosage: 420MG/14ML
     Route: 041
     Dates: start: 20140227, end: 20140227
  2. HERCEPTIN [Suspect]
     Indication: BREAST CANCER METASTATIC
     Route: 042
     Dates: start: 20110112, end: 20110803
  3. HERCEPTIN [Suspect]
     Route: 042
     Dates: start: 20120201, end: 20130109
  4. HERCEPTIN [Suspect]
     Route: 042
     Dates: start: 20140227, end: 20140227
  5. XELODA [Suspect]
     Indication: BREAST CANCER METASTATIC
     Route: 048
     Dates: start: 20130313, end: 20140205
  6. XELODA [Suspect]
     Indication: BREAST CANCER METASTATIC
     Route: 048
     Dates: start: 20140227
  7. DOCETAXEL [Suspect]
     Indication: BREAST CANCER METASTATIC
     Route: 042
     Dates: start: 20120201, end: 20130109
  8. ENDOXAN [Suspect]
     Indication: BREAST CANCER METASTATIC
     Route: 042
     Dates: start: 20110818, end: 20120111
  9. ENDOXAN [Suspect]
     Route: 042
     Dates: start: 20120201, end: 20130109
  10. ENDOXAN [Concomitant]
     Indication: BREAST CANCER METASTATIC
     Dosage: FORM:POR
     Route: 048
     Dates: start: 20130313, end: 20140205
  11. ENDOXAN [Concomitant]
     Dosage: FORM:POR
     Route: 048
     Dates: start: 20140227
  12. HYSRON H [Concomitant]
     Indication: BREAST CANCER METASTATIC
     Dosage: FORM:POR
     Route: 048
     Dates: start: 20130313, end: 20140205
  13. HYSRON H [Concomitant]
     Dosage: FORM:POR
     Route: 048
     Dates: start: 20140227
  14. LOXONIN [Concomitant]
     Dosage: DOSAGE IS UNCERTAIN
     Route: 048
  15. MUCOSTA [Concomitant]
     Dosage: DOSAGE IS UNCERTAIN
     Route: 048
  16. ADONA [Concomitant]
     Dosage: DOSAGE IS UNCERTAIN.FORM:POR
     Route: 048
  17. FERROMIA [Concomitant]
     Dosage: DOSAGE IS UNCERTAIN.FORM:POR
     Route: 048
  18. ROHYPNOL [Concomitant]
     Dosage: DOSAGE IS UNCERTAIN.
     Route: 048
  19. LYRICA [Concomitant]
     Dosage: DOSAGE IS UNCERTAIN.FORM:POR
     Route: 048
  20. PYDOXAL [Concomitant]
     Dosage: DOSAGE IS UNCERTAIN.FORM:POR
     Route: 048
  21. TYKERB [Concomitant]
     Dosage: FORM:POR
     Route: 048

REACTIONS (2)
  - Cardiac failure acute [Fatal]
  - Pneumonia influenzal [Unknown]
